FAERS Safety Report 6525471-6 (Version None)
Quarter: 2010Q1

REPORT INFORMATION
  Report Type: 
  Country: None (occurrence: None)
  Receive Date: 20100104
  Receipt Date: 20091222
  Transmission Date: 20100710
  Serious: Yes (Other)
  Sender: FDA-Public Use
  Company Number: US-ELI_LILLY_AND_COMPANY-US200912005347

PATIENT
  Sex: Male

DRUGS (6)
  1. FORTEO [Suspect]
     Indication: OSTEOPOROSIS
     Dosage: UNK, UNKNOWN
     Dates: start: 20050101
  2. FORTEO [Suspect]
     Dosage: 8 UG, DAILY (1/D)
     Dates: end: 20091001
  3. HYDROCHLOROTHIAZIDE [Concomitant]
     Indication: URINE CALCIUM
     Dosage: 50 MG, UNKNOWN
  4. POTASSIUM CITRATE [Concomitant]
     Dosage: UNK, UNKNOWN
  5. INSULIN [Concomitant]
     Dosage: UNK, UNKNOWN
  6. LEVOTHYROXINE SODIUM [Concomitant]
     Dosage: 75 UG, UNKNOWN

REACTIONS (4)
  - DRUG DOSE OMISSION [None]
  - FALL [None]
  - INCORRECT DOSE ADMINISTERED [None]
  - OSTEOPOROTIC FRACTURE [None]
